FAERS Safety Report 7126674-2 (Version None)
Quarter: 2010Q4

REPORT INFORMATION
  Report Type: 
  Country: None (occurrence: None)
  Receive Date: 20101129
  Receipt Date: 20101125
  Transmission Date: 20110411
  Serious: Yes (Death)
  Sender: FDA-Public Use
  Company Number: CO-ROCHE-744302

PATIENT
  Sex: Male

DRUGS (1)
  1. MIRCERA [Suspect]
     Dosage: STOP DATE: NOVEMBER 2010.
     Route: 058
     Dates: start: 20100909

REACTIONS (2)
  - DEATH [None]
  - MYOCARDIAL INFARCTION [None]
